FAERS Safety Report 6166032-0 (Version None)
Quarter: 2009Q2

REPORT INFORMATION
  Report Type: 
  Country: None (occurrence: None)
  Receive Date: 20090424
  Receipt Date: 20090414
  Transmission Date: 20091009
  Serious: Yes (Other)
  Sender: FDA-Public Use
  Company Number: GB-RANBAXY-2009RR-23456

PATIENT
  Age: 60 Year
  Sex: Female

DRUGS (2)
  1. FLUOXETINE [Suspect]
     Dosage: UNK MG, BID
  2. CHAMPIX [Suspect]
     Indication: SMOKING CESSATION THERAPY
     Dosage: 1 MG, BID

REACTIONS (10)
  - AGGRESSION [None]
  - DEPRESSION [None]
  - ECZEMA [None]
  - EYELID OEDEMA [None]
  - FAECAL INCONTINENCE [None]
  - IRRITABILITY [None]
  - LETHARGY [None]
  - MALAISE [None]
  - RASH [None]
  - SUICIDAL IDEATION [None]
